FAERS Safety Report 12389555 (Version 1)
Quarter: 2016Q2

REPORT INFORMATION
  Report Type: Report from Study
  Country: US (occurrence: US)
  Receive Date: 20160520
  Receipt Date: 20160520
  Transmission Date: 20160815
  Serious: No
  Sender: FDA-Public Use
  Company Number: US-MDT-ADR-2016-00138

PATIENT
  Age: 70 Year
  Sex: Male

DRUGS (11)
  1. GABAPENTIN. [Suspect]
     Active Substance: GABAPENTIN
  2. NORTRIPTYLINE [Suspect]
     Active Substance: NORTRIPTYLINE
  3. COMPOUNDED BACLOFEN [Suspect]
     Active Substance: BACLOFEN
     Dosage: 112.96MCG/DAY
     Route: 037
     Dates: start: 20151016
  4. BACLOFEN, [Suspect]
     Active Substance: BACLOFEN
  5. TRAMADOL. [Suspect]
     Active Substance: TRAMADOL
  6. ACETAMINOPHEN\HYDROCODONE BITARTRATE [Suspect]
     Active Substance: ACETAMINOPHEN\HYDROCODONE BITARTRATE
  7. DILAUDID [Suspect]
     Active Substance: HYDROMORPHONE HYDROCHLORIDE
     Dosage: 0.06777MG/DAY
     Route: 037
     Dates: start: 20151016
  8. COMPOUNDED BACLOFEN [Suspect]
     Active Substance: BACLOFEN
     Dosage: 140.05MCG/DAY
     Route: 037
     Dates: end: 20151016
  9. DILAUDID [Suspect]
     Active Substance: HYDROMORPHONE HYDROCHLORIDE
     Dosage: 0.08403MG/DAY
     Route: 037
     Dates: end: 20151016
  10. OXYCODONE-ACETAMINOPHEN [Suspect]
     Active Substance: ACETAMINOPHEN\OXYCODONE HYDROCHLORIDE
  11. DESIPRAMINE, [Suspect]
     Active Substance: DESIPRAMINE

REACTIONS (3)
  - Drug tolerance increased [Recovered/Resolved]
  - No therapeutic response [Recovered/Resolved]
  - Pain [Recovered/Resolved]
